FAERS Safety Report 7275801-5 (Version None)
Quarter: 2011Q1

REPORT INFORMATION
  Report Type: 
  Country: None (occurrence: None)
  Receive Date: 20110204
  Receipt Date: 20110124
  Transmission Date: 20110831
  Serious: Yes (Other)
  Sender: FDA-Public Use
  Company Number: GR-WATSON-2011-00740

PATIENT
  Age: 60 Year
  Sex: Male

DRUGS (2)
  1. DICLOFENAC (WATSON LABORATORIES) [Suspect]
     Indication: BACK PAIN
     Dosage: 75 MG, BID
  2. ACETYLSALICYLIC ACID [Suspect]
     Indication: ANTIPLATELET THERAPY
     Dosage: 125 MG, DAILY FOR A FEW YEARS

REACTIONS (1)
  - HAEMOPTYSIS [None]
